FAERS Safety Report 9045547 (Version 1)
Quarter: 2013Q1

REPORT INFORMATION
  Report Type: Spontaneous
  Country: US (occurrence: US)
  Receive Date: 20130131
  Receipt Date: 20130131
  Transmission Date: 20140127
  Serious: No
  Sender: FDA-Public Use
  Company Number: US-ABBOTT-12P-163-1006836-00

PATIENT
  Sex: 0

DRUGS (4)
  1. HUMIRA [Suspect]
     Indication: PRODUCT USED FOR UNKNOWN INDICATION
  2. PREDNISONE [Concomitant]
  3. FLAGYL [Concomitant]
     Indication: INFLAMMATION
  4. BUDESONIDE [Concomitant]
     Indication: FISTULA

REACTIONS (6)
  - Drug ineffective [Unknown]
  - Fistula [Unknown]
  - Pain [Unknown]
  - Inflammation [Unknown]
  - Anal fistula [Unknown]
  - Haemorrhage [Unknown]
